FAERS Safety Report 15273095 (Version 1)
Quarter: 2018Q3

REPORT INFORMATION
  Report Type: Spontaneous
  Country: US (occurrence: US)
  Receive Date: 20180813
  Receipt Date: 20180813
  Transmission Date: 20181010
  Serious: No
  Sender: FDA-Public Use
  Company Number: US-PURDUE-USA-2018-0144208

PATIENT
  Age: 51 Year
  Sex: Female

DRUGS (3)
  1. BUTRANS [Suspect]
     Active Substance: BUPRENORPHINE
     Dosage: 5 MCG/HR, WEEKLY
     Route: 062
  2. BUTRANS [Suspect]
     Active Substance: BUPRENORPHINE
     Indication: PAIN
     Dosage: 5 MCG/HR, QOD
     Route: 062
     Dates: start: 20180621
  3. BUTRANS [Suspect]
     Active Substance: BUPRENORPHINE
     Dosage: 5 OR 10 MCG/HR, WEEKLY
     Route: 062
     Dates: start: 2016, end: 2016

REACTIONS (3)
  - Drug prescribing error [Unknown]
  - Drug effect decreased [Not Recovered/Not Resolved]
  - Skin lesion [Unknown]

NARRATIVE: CASE EVENT DATE: 2016
